FAERS Safety Report 9143461 (Version 1)
Quarter: 2013Q1

REPORT INFORMATION
  Report Type: Spontaneous
  Country: NL (occurrence: NL)
  Receive Date: 20130306
  Receipt Date: 20130306
  Transmission Date: 20140127
  Serious: Yes (Hospitalization)
  Sender: FDA-Public Use
  Company Number: NL-PFIZER INC-2013072618

PATIENT
  Age: 82 Year
  Sex: Male
  Weight: 98 kg

DRUGS (12)
  1. CLINDAMYCIN HCL [Suspect]
     Indication: INFECTION
     Dosage: 600 MG, 3X/DAY
     Route: 048
     Dates: start: 20130201, end: 20130204
  2. PANTOZOL [Concomitant]
     Dosage: 20 MG, 1X/DAY
     Dates: start: 2009
  3. FUROSEMIDE [Concomitant]
     Dosage: 40 MG, 1X/DAY
     Dates: start: 2011
  4. CALCICHEW-D3 [Concomitant]
     Dosage: UNK, 1X/DAY
     Dates: start: 2011
  5. LANOXIN [Concomitant]
     Dosage: 62.5 MG, 1X/DAY
     Dates: start: 2011
  6. PARACETAMOL [Concomitant]
     Dosage: 1000 MG, 4X/DAY
  7. ACENOCOUMAROL [Concomitant]
     Dosage: UNK
     Dates: start: 2011
  8. ACETYLSALICYLIC ACID [Concomitant]
     Dosage: 80 MG, 1X/DAY
     Dates: start: 2011
  9. BISOPROLOL [Concomitant]
     Dosage: 5 MG, 1X/DAY
     Dates: start: 2011
  10. NOVORAPID [Concomitant]
     Dosage: UNK
     Dates: start: 2010
  11. NOVOMIX [Concomitant]
     Dosage: UNK
     Dates: start: 2011
  12. ATROVENT [Concomitant]
     Dosage: UNK
     Dates: start: 2010

REACTIONS (2)
  - Renal impairment [Recovered/Resolved]
  - Skin reaction [Recovered/Resolved]
